FAERS Safety Report 12605364 (Version 9)
Quarter: 2018Q3

REPORT INFORMATION
  Report Type: Report from Study
  Country: US (occurrence: US)
  Receive Date: 20160729
  Receipt Date: 20180705
  Transmission Date: 20181010
  Serious: Yes (Hospitalization)
  Sender: FDA-Public Use
  Company Number: US-ROCHE-1747811

PATIENT
  Age: 44 Year
  Sex: Male

DRUGS (81)
  1. CYCLOPHOSPHAMIDE. [Suspect]
     Active Substance: CYCLOPHOSPHAMIDE
     Indication: B-CELL LYMPHOMA
  2. ONDANSETRON [Concomitant]
     Active Substance: ONDANSETRON
     Indication: PROPHYLAXIS
     Dosage: PROPHYLAXIS TO CHEMO INDUCED NAUSEA/VOMITING
     Route: 065
     Dates: start: 20160421, end: 20160510
  3. ACETAMINOPHEN. [Concomitant]
     Active Substance: ACETAMINOPHEN
     Indication: PAIN
     Route: 065
     Dates: start: 20160510, end: 20160510
  4. ACETAMINOPHEN. [Concomitant]
     Active Substance: ACETAMINOPHEN
     Route: 065
     Dates: start: 20160604, end: 20160604
  5. HYDROMORPHONE [Concomitant]
     Active Substance: HYDROMORPHONE
     Indication: PAIN
     Route: 065
     Dates: start: 20160526, end: 20160528
  6. MAGNESIUM SULFATE. [Concomitant]
     Active Substance: MAGNESIUM SULFATE
     Route: 065
     Dates: start: 20160531, end: 20160531
  7. POTASSIUM CHLORIDE. [Concomitant]
     Active Substance: POTASSIUM CHLORIDE
     Indication: HYPOKALAEMIA
     Route: 065
     Dates: start: 20160531, end: 20160531
  8. RITUXIMAB. [Suspect]
     Active Substance: RITUXIMAB
     Indication: B-CELL LYMPHOMA
  9. PREDNISONE. [Suspect]
     Active Substance: PREDNISONE
     Indication: B-CELL LYMPHOMA
  10. COMPAZINE [Concomitant]
     Active Substance: PROCHLORPERAZINE MALEATE
     Indication: NAUSEA
     Route: 065
     Dates: start: 20160421
  11. FILGRASTIM [Concomitant]
     Active Substance: FILGRASTIM
     Indication: PROPHYLAXIS
     Dosage: NEUTROPENIA PROPHYLAXIS
     Route: 065
     Dates: start: 20160421, end: 20160422
  12. MAGNESIUM HYDROXIDE. [Concomitant]
     Active Substance: MAGNESIUM HYDROXIDE
     Indication: PROPHYLAXIS
     Dosage: PROPHYLAXIS TO CONSTIPATION
     Route: 065
     Dates: start: 20160422, end: 20160503
  13. NORMAL SALINE [Concomitant]
     Active Substance: SODIUM CHLORIDE
     Route: 065
     Dates: start: 20160510, end: 20160510
  14. PALONOSETRON. [Concomitant]
     Active Substance: PALONOSETRON HYDROCHLORIDE
     Indication: PROPHYLAXIS
     Dosage: PROPHYLAXIS FOR CHEMO INDUCED NAUSEA/VOMITING
     Route: 065
     Dates: start: 20160418, end: 20160418
  15. ACETAMINOPHEN. [Concomitant]
     Active Substance: ACETAMINOPHEN
     Indication: PREMEDICATION
     Dosage: RITUXIMAB PRE MEDICATION
     Route: 065
     Dates: start: 20160418, end: 20160418
  16. FUROSEMIDE. [Concomitant]
     Active Substance: FUROSEMIDE
     Indication: OEDEMA
     Route: 065
     Dates: start: 20160420, end: 20160421
  17. VANCOMYCIN [Concomitant]
     Active Substance: VANCOMYCIN
     Indication: EVIDENCE BASED TREATMENT
     Route: 065
     Dates: start: 20160425, end: 20160425
  18. CIPROFLOXACIN. [Concomitant]
     Active Substance: CIPROFLOXACIN
     Indication: FEBRILE NEUTROPENIA
     Route: 065
     Dates: start: 20160425, end: 20160502
  19. OMEPRAZOLE. [Concomitant]
     Active Substance: OMEPRAZOLE
     Route: 065
     Dates: start: 20160425, end: 20160425
  20. VENETOCLAX. [Suspect]
     Active Substance: VENETOCLAX
     Indication: DIFFUSE LARGE B-CELL LYMPHOMA
     Dosage: THE MOST RECENT DOSE ADMINISTERED PRIOR TO FEBRILE NEUTROPENIAQ WAS 800 MG ADMINISTERED ON 24/APR/20
     Route: 048
     Dates: start: 20160421
  21. DOCUSATE SODIUM. [Concomitant]
     Active Substance: DOCUSATE SODIUM
     Indication: PROPHYLAXIS
     Dosage: PROPHYLAXIS TO CONSTIPATION
     Route: 065
     Dates: start: 20160419, end: 20161108
  22. NORMAL SALINE [Concomitant]
     Active Substance: SODIUM CHLORIDE
     Route: 065
     Dates: start: 20160518, end: 20160518
  23. NORMAL SALINE [Concomitant]
     Active Substance: SODIUM CHLORIDE
     Route: 065
     Dates: start: 20160526, end: 20160526
  24. DEXAMETHASONE. [Concomitant]
     Active Substance: DEXAMETHASONE
     Route: 065
     Dates: start: 20160510, end: 20160510
  25. CLINDAMYCIN. [Concomitant]
     Active Substance: CLINDAMYCIN
     Indication: CHILLS
  26. CYCLOPHOSPHAMIDE. [Suspect]
     Active Substance: CYCLOPHOSPHAMIDE
     Indication: DIFFUSE LARGE B-CELL LYMPHOMA
     Dosage: THE MOST RECENT DOSE WAS ADMINISTERED PRIOR TO FEBRILE NEUTROPENIA ON 18/APR/2016 (DOSE OF 1500 MG)
     Route: 042
     Dates: start: 20160418
  27. VINCRISTINE [Suspect]
     Active Substance: VINCRISTINE
     Indication: B-CELL LYMPHOMA
  28. ACYCLOVIR. [Concomitant]
     Active Substance: ACYCLOVIR
     Dosage: HERPES ZOSTER PROPHYLAXIS
     Route: 065
     Dates: start: 20160417, end: 20161108
  29. PANTOPRAZOLE [Concomitant]
     Active Substance: PANTOPRAZOLE
     Indication: PROPHYLAXIS
     Dosage: PROPHYLAXIS TO GERD
     Route: 065
     Dates: start: 20160418, end: 20161108
  30. IOHEXOL [Concomitant]
     Active Substance: IOHEXOL
     Route: 065
     Dates: start: 20160526, end: 20160526
  31. ENOXAPARIN [Concomitant]
     Active Substance: ENOXAPARIN
     Indication: THROMBOSIS PROPHYLAXIS
     Dosage: PROPHYLAXIS FOR DVT
     Route: 065
     Dates: start: 20160425, end: 20160425
  32. HYDROMORPHONE [Concomitant]
     Active Substance: HYDROMORPHONE
     Route: 065
     Dates: start: 20160601, end: 20160603
  33. MAGNESIUM SULFATE. [Concomitant]
     Active Substance: MAGNESIUM SULFATE
     Indication: CONSTIPATION
     Route: 065
     Dates: start: 20160528, end: 20160528
  34. LACTATED RINGERS SOLUTION [Concomitant]
     Active Substance: CALCIUM CHLORIDE\POTASSIUM CHLORIDE\SODIUM CHLORIDE\SODIUM LACTATE
     Indication: BLOOD ELECTROLYTES
     Route: 040
     Dates: start: 20160602, end: 20160602
  35. AZTREONAM. [Concomitant]
     Active Substance: AZTREONAM
     Indication: EVIDENCE BASED TREATMENT
     Route: 065
     Dates: start: 20160425, end: 20160425
  36. METRONIDAZOLE. [Concomitant]
     Active Substance: METRONIDAZOLE
     Indication: SMALL INTESTINAL OBSTRUCTION
     Route: 065
     Dates: start: 20160518, end: 20160520
  37. CLINDAMYCIN. [Concomitant]
     Active Substance: CLINDAMYCIN
     Indication: PRODUCTIVE COUGH
  38. ALLOPURINOL. [Concomitant]
     Active Substance: ALLOPURINOL
     Indication: PROPHYLAXIS
     Dosage: PROPHYLAXIS TO TLS
     Route: 065
     Dates: start: 20160417, end: 20160501
  39. POLYETHYLENE GLYCOL [Concomitant]
     Active Substance: POLYETHYLENE GLYCOLS
     Indication: PROPHYLAXIS
     Dosage: PROPHYLAXIS TO CONSTIPATION
     Route: 065
     Dates: start: 20160417, end: 20170117
  40. NORMAL SALINE [Concomitant]
     Active Substance: SODIUM CHLORIDE
     Route: 065
     Dates: start: 20160519, end: 20160520
  41. NORMAL SALINE [Concomitant]
     Active Substance: SODIUM CHLORIDE
     Route: 065
     Dates: start: 20160527, end: 20160527
  42. PALONOSETRON. [Concomitant]
     Active Substance: PALONOSETRON HYDROCHLORIDE
     Route: 065
     Dates: start: 20160510, end: 20160510
  43. DEXAMETHASONE. [Concomitant]
     Active Substance: DEXAMETHASONE
     Indication: PREMEDICATION
     Route: 065
     Dates: start: 20160418, end: 20160418
  44. DIPHENHYDRAMINE. [Concomitant]
     Active Substance: DIPHENHYDRAMINE
     Indication: PREMEDICATION
     Dosage: RITUXIMAB PRE MEDICATION
     Route: 065
     Dates: start: 20160418, end: 20160418
  45. ACETAMINOPHEN. [Concomitant]
     Active Substance: ACETAMINOPHEN
     Route: 065
     Dates: start: 20170402, end: 20170402
  46. LACTULOSE. [Concomitant]
     Active Substance: LACTULOSE
     Indication: PROPHYLAXIS
     Route: 065
     Dates: start: 20160418, end: 20160418
  47. PEGFILGRASTIM [Concomitant]
     Active Substance: PEGFILGRASTIM
     Dosage: NEUTROPENIA PROPHYLAXIS
     Route: 065
     Dates: start: 20160511, end: 20160511
  48. METRONIDAZOLE. [Concomitant]
     Active Substance: METRONIDAZOLE
     Indication: FEBRILE NEUTROPENIA
     Route: 065
     Dates: start: 20160425, end: 20160502
  49. METRONIDAZOLE. [Concomitant]
     Active Substance: METRONIDAZOLE
     Route: 065
     Dates: start: 20160531, end: 20160531
  50. RBC TRANSFUSION [Concomitant]
     Indication: ANAEMIA
     Route: 065
     Dates: start: 20160420, end: 20160423
  51. VENETOCLAX. [Suspect]
     Active Substance: VENETOCLAX
     Indication: B-CELL LYMPHOMA
  52. DOXORUBICIN [Suspect]
     Active Substance: DOXORUBICIN
     Indication: B-CELL LYMPHOMA
  53. PREDNISONE. [Suspect]
     Active Substance: PREDNISONE
     Indication: DIFFUSE LARGE B-CELL LYMPHOMA
     Dosage: THE MOST RECENT DOSE WAS ADMINISTERED PRIOR TO FEBRILE NEUTROPENIA ON 22/APR/2016 (DOSE OF 100 MG)?M
     Route: 048
     Dates: start: 20160418
  54. FILGRASTIM [Concomitant]
     Active Substance: FILGRASTIM
     Dosage: NEUTROPENIA PROPHYLAXIS
     Route: 065
     Dates: start: 20160422, end: 20160422
  55. FILGRASTIM [Concomitant]
     Active Substance: FILGRASTIM
     Route: 065
     Dates: start: 20160425, end: 20160426
  56. FILGRASTIM [Concomitant]
     Active Substance: FILGRASTIM
     Route: 065
     Dates: start: 20160511, end: 20160511
  57. SENNA [Concomitant]
     Active Substance: SENNA LEAF\SENNOSIDES\SENNOSIDES A AND B
     Indication: PROPHYLAXIS
     Dosage: PROPHYLAXIS TO CONSTIPATION
     Route: 065
     Dates: start: 20160418, end: 20170117
  58. NORMAL SALINE [Concomitant]
     Active Substance: SODIUM CHLORIDE
     Route: 065
     Dates: start: 20160425, end: 20160425
  59. DIPHENHYDRAMINE. [Concomitant]
     Active Substance: DIPHENHYDRAMINE
     Route: 065
     Dates: start: 20160518, end: 20160518
  60. IOHEXOL [Concomitant]
     Active Substance: IOHEXOL
     Route: 065
     Dates: start: 20160425, end: 20160425
  61. IOHEXOL [Concomitant]
     Active Substance: IOHEXOL
     Route: 065
     Dates: start: 20160518, end: 20160518
  62. ENOXAPARIN [Concomitant]
     Active Substance: ENOXAPARIN
     Route: 065
     Dates: start: 20160602, end: 20160606
  63. NEOMYCIN SULFATE. [Concomitant]
     Active Substance: NEOMYCIN SULFATE
     Route: 065
     Dates: start: 20160531, end: 20160531
  64. NORMOSOL?R [Concomitant]
     Active Substance: MAGNESIUM CHLORIDE\POTASSIUM CHLORIDE\SODIUM ACETATE ANHYDROUS\SODIUM CHLORIDE\SODIUM GLUCONATE
     Indication: BLOOD ELECTROLYTES
     Route: 065
     Dates: start: 20160601, end: 20160603
  65. RITUXIMAB. [Suspect]
     Active Substance: RITUXIMAB
     Indication: DIFFUSE LARGE B-CELL LYMPHOMA
     Dosage: THE MOST RECENT DOSE WAS ADMINISTERED PRIOR TO FEBRILE NEUTROPENIA ON 18/APR/2016 (DOSE OF 750 MG)?T
     Route: 042
     Dates: start: 20160418
  66. VINCRISTINE [Suspect]
     Active Substance: VINCRISTINE
     Indication: DIFFUSE LARGE B-CELL LYMPHOMA
     Dosage: THE MOST RECENT DOSE WAS ADMINISTERED PRIOR TO FEBRILE NEUTROPENIA ON 18/APR/2016 (DOSE OF 2 MG)?MOS
     Route: 050
     Dates: start: 20160418
  67. PROCHLORPERAZINE. [Concomitant]
     Active Substance: PROCHLORPERAZINE
     Indication: PROPHYLAXIS
     Dosage: PROPHYLAXIS TO CHEMO INDUCED NAUSEA/VOMITING
     Route: 065
     Dates: start: 20160421, end: 20160614
  68. PROCHLORPERAZINE. [Concomitant]
     Active Substance: PROCHLORPERAZINE
     Route: 065
     Dates: start: 20160518, end: 20160520
  69. OXYCODONE [Concomitant]
     Active Substance: OXYCODONE
     Indication: PAIN
     Route: 065
     Dates: start: 20160510
  70. NORMAL SALINE [Concomitant]
     Active Substance: SODIUM CHLORIDE
     Route: 065
     Dates: start: 20160419, end: 20160422
  71. FOSAPREPITANT [Concomitant]
     Active Substance: FOSAPREPITANT
     Indication: PROPHYLAXIS
     Route: 065
     Dates: start: 20160418, end: 20160418
  72. FOSAPREPITANT [Concomitant]
     Active Substance: FOSAPREPITANT
     Route: 065
     Dates: start: 20160510, end: 20160510
  73. ACETAMINOPHEN. [Concomitant]
     Active Substance: ACETAMINOPHEN
     Route: 065
     Dates: start: 20160601, end: 20160604
  74. ENOXAPARIN [Concomitant]
     Active Substance: ENOXAPARIN
     Route: 065
     Dates: start: 20160527, end: 20160530
  75. DOXORUBICIN [Suspect]
     Active Substance: DOXORUBICIN
     Indication: DIFFUSE LARGE B-CELL LYMPHOMA
     Dosage: THE MOST RECENT DOSE WAS ADMINISTERED PRIOR TO FEBRILE NEUTROPENIA ON 18/APR/2016 (DOSE OF 100 MG)?M
     Route: 042
     Dates: start: 20160418
  76. FILGRASTIM [Concomitant]
     Active Substance: FILGRASTIM
     Route: 065
     Dates: start: 20170403, end: 20170404
  77. NORMAL SALINE [Concomitant]
     Active Substance: SODIUM CHLORIDE
     Indication: DEHYDRATION
     Route: 065
     Dates: start: 20160417, end: 20160417
  78. DIPHENHYDRAMINE. [Concomitant]
     Active Substance: DIPHENHYDRAMINE
     Route: 065
     Dates: start: 20160510, end: 20160510
  79. KETOROLAC [Concomitant]
     Active Substance: KETOROLAC\KETOROLAC TROMETHAMINE
     Indication: PAIN
     Route: 065
     Dates: start: 20160601, end: 20160602
  80. CLINDAMYCIN. [Concomitant]
     Active Substance: CLINDAMYCIN
     Indication: RHINORRHOEA
  81. CLINDAMYCIN. [Concomitant]
     Active Substance: CLINDAMYCIN
     Indication: PYREXIA

REACTIONS (4)
  - Pyrexia [Recovered/Resolved]
  - Small intestinal obstruction [Recovered/Resolved with Sequelae]
  - Small intestinal obstruction [Recovered/Resolved]
  - Febrile neutropenia [Recovered/Resolved]

NARRATIVE: CASE EVENT DATE: 20160424
